FAERS Safety Report 9883614 (Version 1)
Quarter: 2014Q1

REPORT INFORMATION
  Report Type: Spontaneous
  Country: JP (occurrence: JP)
  Receive Date: 20140210
  Receipt Date: 20140210
  Transmission Date: 20141002
  Serious: Yes (Other)
  Sender: FDA-Public Use
  Company Number: JP-ROCHE-1344102

PATIENT
  Age: 86 Year
  Sex: Female
  Weight: 35 kg

DRUGS (3)
  1. MIRCERA [Suspect]
     Indication: NEPHROGENIC ANAEMIA
     Route: 065
     Dates: start: 2011, end: 201202
  2. MIRCERA [Suspect]
     Route: 042
     Dates: start: 20131224, end: 20131224
  3. FERROMIA [Suspect]
     Indication: PRODUCT USED FOR UNKNOWN INDICATION
     Route: 048
     Dates: start: 20131225, end: 20140115

REACTIONS (1)
  - Stevens-Johnson syndrome [Recovering/Resolving]
